FAERS Safety Report 5701450-3 (Version None)
Quarter: 2008Q2

REPORT INFORMATION
  Report Type: 
  Country: None (occurrence: None)
  Receive Date: 20080407
  Receipt Date: 20080320
  Transmission Date: 20081010
  Serious: Yes (Other)
  Sender: FDA-Public Use
  Company Number: DSA_31640_2008

PATIENT
  Sex: Female

DRUGS (4)
  1. TEMESTA /00273201/ (TEMESTA - LORAZEPAM) (NOT SPECIFIED) [Suspect]
     Indication: DRUG USE FOR UNKNOWN INDICATION
     Dosage: (2.5 MG QD ORAL)
     Route: 048
     Dates: start: 20060321
  2. ETHANOL (ALCOHOL - ETHANOL) [Suspect]
     Dates: end: 20060201
  3. CIPRALEX /01588501/ (CIPRALEX - ESCITALOPRAM) [Suspect]
     Indication: DEPRESSION
     Dosage: (DF)
  4. TRANXILIUM (TRANXILIUM - CLORAZEPATE DIPOTASSIUM) (NOT SPECIFIED) [Suspect]
     Indication: DEPRESSION
     Dosage: (10 MG BID ORAL)
     Route: 048
     Dates: end: 20060321

REACTIONS (3)
  - DRUG EXPOSURE DURING PREGNANCY [None]
  - INFECTION [None]
  - PREMATURE LABOUR [None]
